FAERS Safety Report 8406375-0 (Version None)
Quarter: 2012Q2

REPORT INFORMATION
  Report Type: 
  Country: None (occurrence: None)
  Receive Date: 20120604
  Receipt Date: 20120601
  Transmission Date: 20120825
  Serious: Yes (Death)
  Sender: FDA-Public Use
  Company Number: PHHY2012CA045972

PATIENT
  Sex: Female

DRUGS (13)
  1. CLOZARIL [Suspect]
     Dosage: UNK UKN, UNK
  2. VALPROATE SODIUM [Concomitant]
     Dosage: 4 DF, UNK (EVERY NIGHT AT BEDTIME)
  3. CRESTOR [Concomitant]
     Dosage: 1 DF, QD (1 TABLET AT BEDTIME)
  4. QUETIAPINE [Concomitant]
     Dosage: 2 DF, QD (2 TABLET AT BEDTIME)
  5. BUPROPION HCL [Concomitant]
     Dosage: 1 DF, BID (IN THE MORNING AND SUPPER)
  6. ENTROPHEN [Concomitant]
     Dosage: 1 DF, QD (IN THE MORNING)
  7. ISOPTO ATROPIN [Concomitant]
     Dosage: UNK UKN, UNK
  8. METFORMIN HCL [Concomitant]
     Dosage: 1 DF, BID (IN THE MORNING AND WITH SUPPER)
  9. NOVO-PERIDOL [Concomitant]
     Dosage: 1 DF, QD (1 TABLET EVERY NIGHT AT BEDTIME)
  10. SOFLAX [Concomitant]
     Dosage: (TAKE 3 CAPSULES TWICE DAILY(IN THE MORNING AND BEDTIME)
  11. APO-BENZTROPINE [Concomitant]
     Dosage: 0.5 MG, UNK(EVERY MORNING AND EVERY NIGHT AT BEDTIME)
  12. CLOZARIL [Suspect]
     Indication: SCHIZOPHRENIA
     Dosage: (1 TABLET EVERY NIGHT AT BEDTIME ALONG WITH 4 TABLETS OF 100 MG)
     Route: 048
     Dates: start: 19951016
  13. NOVO-PERIDOL [Concomitant]
     Dosage: UNK UKN, UNK

REACTIONS (1)
  - MULTI-ORGAN FAILURE [None]
